FAERS Safety Report 18761285 (Version 1)
Quarter: 2021Q1

REPORT INFORMATION
  Report Type: Report from Study
  Country: None (occurrence: US)
  Receive Date: 20210119
  Receipt Date: 20210119
  Transmission Date: 20210419
  Serious: Yes (Hospitalization)
  Sender: FDA-Public Use
  Company Number: US-ABBVIE-21K-163-3717545-00

PATIENT
  Sex: Male

DRUGS (1)
  1. VENCLEXTA [Suspect]
     Active Substance: VENETOCLAX
     Indication: DIFFUSE LARGE B-CELL LYMPHOMA
     Dosage: TAKE 1 TAB BY MOUTH DAY 4,5 BEFORE CHEMO, 2 TAB DAY 2, 3 BEFORE CHEMO
     Route: 048
     Dates: start: 20201217

REACTIONS (8)
  - Vomiting [Unknown]
  - Weight decreased [Not Recovered/Not Resolved]
  - Myocardial infarction [Unknown]
  - Decreased appetite [Unknown]
  - Nausea [Unknown]
  - Hypophagia [Unknown]
  - Off label use [Unknown]
  - Gait inability [Unknown]
